FAERS Safety Report 9053368 (Version 1)
Quarter: 2013Q1

REPORT INFORMATION
  Report Type: Spontaneous
  Country: US (occurrence: US)
  Receive Date: 20130208
  Receipt Date: 20130208
  Transmission Date: 20140127
  Serious: Yes (Hospitalization)
  Sender: FDA-Public Use
  Company Number: US-MERCK-1302USA002818

PATIENT
  Age: 70 None
  Sex: Female
  Weight: 69.34 kg

DRUGS (11)
  1. ZOLINZA [Suspect]
     Dosage: 100 MG, UNK
  2. VOTRIENT [Suspect]
     Indication: HEPATIC CANCER
     Dosage: 400 MG, QD
     Route: 048
  3. VOTRIENT [Suspect]
     Indication: LUNG NEOPLASM MALIGNANT
  4. COREG [Concomitant]
     Dosage: UNK
  5. PHENERGAN (PROMETHAZINE HYDROCHLORIDE) [Concomitant]
     Dosage: UNK
  6. NORVASC [Concomitant]
     Dosage: UNK
  7. SANDOSTATIN [Concomitant]
     Dosage: UNK
  8. PROCHLORPERAZINE [Concomitant]
     Dosage: UNK
  9. OMEPRAZOLE [Concomitant]
     Dosage: UNK
  10. ALTACE [Concomitant]
     Dosage: UNK
  11. IMODIUM [Concomitant]
     Dosage: UNK

REACTIONS (5)
  - Platelet transfusion [Unknown]
  - Platelet count decreased [Unknown]
  - Fatigue [Unknown]
  - Weight decreased [Unknown]
  - Alopecia [Unknown]
